FAERS Safety Report 6388694-5 (Version None)
Quarter: 2009Q4

REPORT INFORMATION
  Report Type: 
  Country: None (occurrence: None)
  Receive Date: 20091005
  Receipt Date: 20090921
  Transmission Date: 20100525
  Serious: Yes (Hospitalization, Other)
  Sender: FDA-Public Use
  Company Number: CA-GENENTECH-274841

PATIENT
  Sex: Male
  Weight: 109 kg

DRUGS (11)
  1. OMALIZUMAB [Suspect]
     Indication: ASTHMA
     Dosage: 300 MG, Q2W
     Route: 058
     Dates: start: 20061117
  2. OMALIZUMAB [Suspect]
     Dosage: 300 MG, Q2W
     Dates: start: 20071031
  3. OMALIZUMAB [Suspect]
     Dosage: 300 MG, Q2W
     Route: 058
     Dates: start: 20071203, end: 20090817
  4. VENTOLIN [Concomitant]
     Indication: DRUG USE FOR UNKNOWN INDICATION
  5. VENTOLIN [Concomitant]
  6. ATROVENT [Concomitant]
     Indication: DRUG USE FOR UNKNOWN INDICATION
  7. ATROVENT [Concomitant]
     Dosage: 10 MG, UNK
  8. SYMBICORT [Concomitant]
     Indication: DRUG USE FOR UNKNOWN INDICATION
  9. CHEMOTHERAPY (UNK INGREDIENTS) [Concomitant]
     Indication: DRUG USE FOR UNKNOWN INDICATION
     Dosage: UNK
  10. ATORVASTATIN [Concomitant]
     Indication: DRUG USE FOR UNKNOWN INDICATION
  11. ADVAIR DISKUS 100/50 [Concomitant]
     Indication: DRUG USE FOR UNKNOWN INDICATION

REACTIONS (18)
  - ACTIVITIES OF DAILY LIVING IMPAIRED [None]
  - ASTHMA [None]
  - CARDIAC FAILURE CONGESTIVE [None]
  - CHRONIC OBSTRUCTIVE PULMONARY DISEASE [None]
  - COUGH [None]
  - DYSPNOEA [None]
  - LUNG NEOPLASM MALIGNANT [None]
  - MALAISE [None]
  - NEUTROPENIA [None]
  - PROSTATE CANCER [None]
  - PROSTATIC SPECIFIC ANTIGEN INCREASED [None]
  - PULMONARY EMBOLISM [None]
  - PULMONARY GRANULOMA [None]
  - RALES [None]
  - RESPIRATORY DISTRESS [None]
  - RESPIRATORY RATE INCREASED [None]
  - RESPIRATORY TRACT CONGESTION [None]
  - TACHYPNOEA [None]
